FAERS Safety Report 8338904-X (Version None)
Quarter: 2012Q2

REPORT INFORMATION
  Report Type: 
  Country: None (occurrence: None)
  Receive Date: 20120506
  Receipt Date: 20120427
  Transmission Date: 20120825
  Serious: Yes (Hospitalization)
  Sender: FDA-Public Use
  Company Number: NL-MEDIMMUNE-MEDI-0014219

PATIENT
  Sex: Male
  Weight: 4.33 kg

DRUGS (2)
  1. SYNAGIS [Suspect]
     Indication: PREMATURE BABY
     Route: 030
     Dates: start: 20111008, end: 20111008
  2. SYNAGIS [Suspect]
     Indication: HYDROCEPHALUS
     Route: 030
     Dates: start: 20111212, end: 20120101

REACTIONS (2)
  - SHUNT OCCLUSION [None]
  - CYST [None]
